FAERS Safety Report 19421485 (Version 1)
Quarter: 2021Q2

REPORT INFORMATION
  Report Type: Spontaneous
  Country: US (occurrence: US)
  Receive Date: 20210615
  Receipt Date: 20210615
  Transmission Date: 20210717
  Serious: Yes (Hospitalization)
  Sender: FDA-Public Use
  Company Number: None

PATIENT
  Age: 58 Year
  Sex: Male

DRUGS (15)
  1. METHOCARBAM [Concomitant]
     Active Substance: METHOCARBAMOL
  2. APPLE CIDER VINEGAR TABS [Concomitant]
  3. MULTI VITAMIN [Concomitant]
     Active Substance: VITAMINS
  4. BACLOFEN. [Concomitant]
     Active Substance: BACLOFEN
  5. GABAPENTIN. [Concomitant]
     Active Substance: GABAPENTIN
  6. GILENYA [Suspect]
     Active Substance: FINGOLIMOD HYDROCHLORIDE
     Indication: MULTIPLE SCLEROSIS
     Route: 048
     Dates: start: 20171201
  7. ADDERALL [Concomitant]
     Active Substance: AMPHETAMINE ASPARTATE\AMPHETAMINE SULFATE\DEXTROAMPHETAMINE SACCHARATE\DEXTROAMPHETAMINE SULFATE
  8. ATORVASTATIN [Concomitant]
     Active Substance: ATORVASTATIN
  9. CLONAZEPAM. [Concomitant]
     Active Substance: CLONAZEPAM
  10. RELAFEN [Concomitant]
     Active Substance: NABUMETONE
  11. VITAMIN B12 [Concomitant]
     Active Substance: CYANOCOBALAMIN
  12. VITAMIN C [Concomitant]
     Active Substance: ASCORBIC ACID
  13. AMPYRA [Concomitant]
     Active Substance: DALFAMPRIDINE
  14. LORTAB [Concomitant]
     Active Substance: ACETAMINOPHEN\HYDROCODONE BITARTRATE
  15. VITAMIN D3 [Concomitant]
     Active Substance: CHOLECALCIFEROL

REACTIONS (1)
  - Encephalitis [None]

NARRATIVE: CASE EVENT DATE: 20210524
